FAERS Safety Report 22122233 (Version 3)
Quarter: 2025Q3

REPORT INFORMATION
  Report Type: Report from Study
  Country: US (occurrence: US)
  Receive Date: 20230321
  Receipt Date: 20250710
  Transmission Date: 20251020
  Serious: Yes (Hospitalization)
  Sender: JAZZ
  Company Number: US-JAZZ PHARMACEUTICALS-2023-US-006246

PATIENT
  Sex: Male

DRUGS (5)
  1. EPIDIOLEX [Suspect]
     Active Substance: CANNABIDIOL
     Indication: Chronic respiratory failure
     Route: 048
     Dates: start: 202209
  2. EPIDIOLEX [Suspect]
     Active Substance: CANNABIDIOL
     Indication: Hypoxia
  3. EPIDIOLEX [Suspect]
     Active Substance: CANNABIDIOL
     Indication: Tracheitis
  4. EPIDIOLEX [Suspect]
     Active Substance: CANNABIDIOL
     Indication: Seizure
  5. EPIDIOLEX [Suspect]
     Active Substance: CANNABIDIOL
     Indication: Chronic respiratory disease

REACTIONS (3)
  - Hyperthermia [Unknown]
  - Blood albumin decreased [Unknown]
  - Off label use [Unknown]
